FAERS Safety Report 9271946 (Version 2)
Quarter: 2013Q2

REPORT INFORMATION
  Report Type: Spontaneous
  Country: US (occurrence: US)
  Receive Date: 20130506
  Receipt Date: 20130521
  Transmission Date: 20140414
  Serious: No
  Sender: FDA-Public Use
  Company Number: US-BAYER-2013-056096

PATIENT
  Age: 42 Year
  Sex: Female
  Weight: 84.35 kg

DRUGS (2)
  1. MIRENA [Suspect]
     Indication: CONTRACEPTION
     Dosage: 20 MCG/24HR, CONT
     Route: 015
     Dates: start: 20130214
  2. ALLEGRA [Concomitant]
     Dosage: UNK

REACTIONS (1)
  - Device expulsion [Not Recovered/Not Resolved]
